FAERS Safety Report 8844223 (Version 2)
Quarter: 2014Q2

REPORT INFORMATION
  Report Type: Spontaneous
  Country: US (occurrence: US)
  Receive Date: 20121016
  Receipt Date: 20131024
  Transmission Date: 20141212
  Serious: No
  Sender: FDA-Public Use
  Company Number: US-PFIZER INC-2012255093

PATIENT
  Age: 47 Year
  Sex: Female
  Weight: 67.57 kg

DRUGS (1)
  1. SOLU-MEDROL [Suspect]
     Indication: DERMATITIS
     Dosage: 125 MG, SINGLE
     Dates: start: 20121011, end: 20121011

REACTIONS (3)
  - Muscle twitching [Recovered/Resolved]
  - Administration site pain [Not Recovered/Not Resolved]
  - Gait disturbance [Recovered/Resolved]
